FAERS Safety Report 17110209 (Version 1)
Quarter: 2019Q4

REPORT INFORMATION
  Report Type: Spontaneous
  Country: US (occurrence: US)
  Receive Date: 20191108
  Receipt Date: 20191108
  Transmission Date: 20200122
  Serious: Yes (Other)
  Sender: FDA-Public Use
  Company Number: None

PATIENT
  Age: 48 Year
  Sex: Female
  Weight: 57.61 kg

DRUGS (8)
  1. PROZAC [Concomitant]
     Active Substance: FLUOXETINE HYDROCHLORIDE
  2. HERBAL OILS [Concomitant]
  3. VITAMINS SUPPLEMENTS [Concomitant]
  4. AMBILYIFY [Concomitant]
  5. INVEGA SUSTENNA [Suspect]
     Active Substance: PALIPERIDONE PALMITATE
     Indication: PAIN
     Dosage: ?          QUANTITY:234 MG MILLIGRAM(S);OTHER FREQUENCY:EVERY 4 WEEKS;?
     Dates: start: 201901, end: 201905
  6. STRATTERA [Concomitant]
     Active Substance: ATOMOXETINE HYDROCHLORIDE
  7. SEROQUEL [Concomitant]
     Active Substance: QUETIAPINE FUMARATE
  8. VITAMIN COMPLEX DIETARY SUPPLEMENTS [Concomitant]

REACTIONS (3)
  - Rash [None]
  - Myalgia [None]
  - Somnolence [None]
